FAERS Safety Report 7146499-1 (Version None)
Quarter: 2010Q4

REPORT INFORMATION
  Report Type: 
  Country: None (occurrence: None)
  Receive Date: 20101208
  Receipt Date: 20101123
  Transmission Date: 20110411
  Serious: No
  Sender: FDA-Public Use
  Company Number: US-B.I. PHARMACEUTICALS,INC./RIDGEFIELD-2010-BP-13394BP

PATIENT
  Age: 75 Year
  Sex: Male

DRUGS (3)
  1. PRADAXA [Suspect]
     Indication: ATRIAL FIBRILLATION
     Dosage: 300 MG
     Route: 048
     Dates: start: 20101119
  2. VYTORIN [Concomitant]
     Indication: BLOOD CHOLESTEROL
  3. AVALIDE [Concomitant]
     Indication: CARDIAC DISORDER

REACTIONS (1)
  - GINGIVAL PAIN [None]
